FAERS Safety Report 10668140 (Version 1)
Quarter: 2014Q4

REPORT INFORMATION
  Report Type: Spontaneous
  Country: US (occurrence: US)
  Receive Date: 20141222
  Receipt Date: 20141222
  Transmission Date: 20150529
  Serious: Yes (Death, Hospitalization, Other)
  Sender: FDA-Public Use
  Company Number: US-GLAXOSMITHKLINE-US2014036364

PATIENT
  Sex: Female

DRUGS (5)
  1. METOPROLOL [Concomitant]
     Active Substance: METOPROLOL
  2. COREG [Suspect]
     Active Substance: CARVEDILOL
     Dosage: 12.5 MG, VA
     Route: 048
     Dates: start: 20141022
  3. STATIN (UNKNOWN) [Suspect]
     Active Substance: UNSPECIFIED INGREDIENT
     Dosage: UNK
     Dates: end: 2014
  4. COREG [Suspect]
     Active Substance: CARVEDILOL
     Indication: MYOCARDIAL INFARCTION
     Dosage: 6.25 MG, UNK
     Dates: start: 20141022
  5. IBUPROFEN. [Concomitant]
     Active Substance: IBUPROFEN

REACTIONS (5)
  - Prescribed overdose [Fatal]
  - Death [Fatal]
  - Cardiac arrest [Fatal]
  - Cardiac failure [Fatal]
  - Musculoskeletal disorder [Unknown]

NARRATIVE: CASE EVENT DATE: 20141022
